FAERS Safety Report 4704975-2 (Version None)
Quarter: 2005Q2

REPORT INFORMATION
  Report Type: 
  Country: None (occurrence: None)
  Receive Date: 20050629
  Receipt Date: 20050629
  Transmission Date: 20051028
  Serious: No
  Sender: FDA-Public Use
  Company Number: None

PATIENT
  Sex: Male
  Weight: 75 kg

DRUGS (3)
  1. NAVELBINE [Suspect]
     Dosage: SEE IMAGE
     Route: 042
     Dates: start: 20050614
  2. CISPLATIN [Suspect]
     Dosage: 75 MG/M2 IV OVER 60 MIN ON DAYS 1,22,50, AND 71
     Route: 042
  3. RADIOTHERAPY [Suspect]
     Dosage: 2 GY FRACTION QD ON DAYS 1-5 QW FOR 6 WEEKS, STARTING ON DAY 50 (PLANNED TOTAL DOSE 60 GY).

REACTIONS (7)
  - ANOREXIA [None]
  - ATRIAL FIBRILLATION [None]
  - CHEST X-RAY ABNORMAL [None]
  - DEPRESSION [None]
  - FATIGUE [None]
  - FEBRILE NEUTROPENIA [None]
  - LUNG NEOPLASM MALIGNANT [None]
